FAERS Safety Report 6250084-3 (Version None)
Quarter: 2009Q2

REPORT INFORMATION
  Report Type: 
  Country: None (occurrence: None)
  Receive Date: 20090625
  Receipt Date: 20090615
  Transmission Date: 20091009
  Serious: Yes (Hospitalization)
  Sender: FDA-Public Use
  Company Number: GXKR2009CH06902

PATIENT
  Age: 74 Year
  Sex: Female
  Weight: 50.8 kg

DRUGS (5)
  1. CLONIDINE [Suspect]
     Indication: BACK PAIN
     Dosage: 78.54 UG/DAY, INFUSION
  2. MORPHINE [Suspect]
     Indication: BACK PAIN
     Dosage: 2.62 MG/DAY, INFUSION
  3. BUPIVACAINE [Suspect]
     Indication: BACK PAIN
     Dosage: 356 MG/DAY, INFUSION
  4. LIDOCAINE [Concomitant]
  5. EPINEPHRINE [Concomitant]

REACTIONS (7)
  - CATHETER RELATED COMPLICATION [None]
  - ERYTHEMA [None]
  - SKIN LESION [None]
  - SKIN SWELLING [None]
  - SKIN ULCER [None]
  - SOFT TISSUE NECROSIS [None]
  - STAPHYLOCOCCAL INFECTION [None]
